FAERS Safety Report 9233425 (Version 2)
Quarter: 2013Q2

REPORT INFORMATION
  Report Type: Spontaneous
  Country: US (occurrence: US)
  Receive Date: 20130416
  Receipt Date: 20130416
  Transmission Date: 20140414
  Serious: No
  Sender: FDA-Public Use
  Company Number: US-BANPHARM-20131053

PATIENT
  Age: 74 Year
  Sex: Male
  Weight: 77.11 kg

DRUGS (2)
  1. ALEVE LIQUID GELS 220MG [Suspect]
     Indication: ANALGESIC THERAPY
     Dosage: 2 DF, QD,
     Route: 048
     Dates: start: 20110624
  2. ALEVE CAPLETS [Suspect]

REACTIONS (3)
  - Dizziness [Recovered/Resolved]
  - Balance disorder [Recovered/Resolved]
  - Incorrect drug administration duration [Recovered/Resolved]
